FAERS Safety Report 23210127 (Version 1)
Quarter: 2023Q4

REPORT INFORMATION
  Report Type: Spontaneous
  Country: GB (occurrence: GB)
  Receive Date: 20231121
  Receipt Date: 20231121
  Transmission Date: 20240109
  Serious: Yes (Other)
  Sender: FDA-Public Use
  Company Number: None

PATIENT
  Age: 4 Year
  Sex: Female
  Weight: 4 kg

DRUGS (2)
  1. PERMETHRIN [Suspect]
     Active Substance: PERMETHRIN
     Indication: Product used for unknown indication
     Route: 065
  2. MALATHION [Concomitant]
     Active Substance: MALATHION
     Dosage: USE AS DIRECTED

REACTIONS (2)
  - Dermatitis acneiform [Unknown]
  - Rash pustular [Unknown]
